FAERS Safety Report 6509380-4 (Version None)
Quarter: 2009Q4

REPORT INFORMATION
  Report Type: 
  Country: None (occurrence: None)
  Receive Date: 20091222
  Receipt Date: 20091215
  Transmission Date: 20100525
  Serious: Yes (Death, Hospitalization, Disabling)
  Sender: FDA-Public Use
  Company Number: US-CELGENEUS-163-21880-09101864

PATIENT
  Sex: Male
  Weight: 55.025 kg

DRUGS (6)
  1. REVLIMID [Suspect]
     Indication: MULTIPLE MYELOMA
     Route: 048
     Dates: start: 20080701, end: 20090923
  2. REVLIMID [Suspect]
     Route: 048
     Dates: start: 20080601, end: 20080701
  3. TESSALON [Concomitant]
     Indication: COUGH
     Route: 065
  4. CLARITIN [Concomitant]
     Indication: DRUG USE FOR UNKNOWN INDICATION
     Route: 065
  5. MEGACE [Concomitant]
     Indication: DECREASED APPETITE
     Route: 065
  6. FLU VACCINE [Concomitant]
     Indication: INFECTION PROPHYLAXIS
     Route: 065
     Dates: start: 20090101, end: 20090101

REACTIONS (9)
  - BRONCHITIS [None]
  - DEHYDRATION [None]
  - FAILURE TO THRIVE [None]
  - FATIGUE [None]
  - HYPOAESTHESIA [None]
  - MULTIPLE MYELOMA [None]
  - PARAESTHESIA [None]
  - PYREXIA [None]
  - SINUSITIS [None]
